FAERS Safety Report 17041508 (Version 1)
Quarter: 2019Q4

REPORT INFORMATION
  Report Type: Spontaneous
  Country: GB (occurrence: GB)
  Receive Date: 20191118
  Receipt Date: 20191118
  Transmission Date: 20200122
  Serious: Yes (Disabling, Congenital Anomaly)
  Sender: FDA-Public Use
  Company Number: GB-TEVA-2019-GB-1137779

PATIENT
  Sex: Female

DRUGS (3)
  1. SODIUM VALPROATE [Suspect]
     Active Substance: VALPROATE SODIUM
     Indication: EPILEPSY
     Route: 064
  2. FLUOXETINE [Concomitant]
     Active Substance: FLUOXETINE HYDROCHLORIDE
     Route: 064
  3. LEVOTHYROXINE. [Concomitant]
     Active Substance: LEVOTHYROXINE
     Route: 064

REACTIONS (7)
  - Hypoacusis [Not Recovered/Not Resolved]
  - Developmental delay [Not Recovered/Not Resolved]
  - Foetal anticonvulsant syndrome [Not Recovered/Not Resolved]
  - Cleft palate [Recovered/Resolved with Sequelae]
  - Speech disorder [Unknown]
  - Cardiac septal defect [Recovered/Resolved]
  - Cardiac murmur [Unknown]

NARRATIVE: CASE EVENT DATE: 20110316
